FAERS Safety Report 11451121 (Version 1)
Quarter: 2015Q3

REPORT INFORMATION
  Report Type: Spontaneous
  Country: US (occurrence: US)
  Receive Date: 20150903
  Receipt Date: 20150903
  Transmission Date: 20151125
  Serious: No
  Sender: FDA-Public Use
  Company Number: US-ROCHE-1030444

PATIENT
  Sex: Female

DRUGS (4)
  1. PEGASYS [Suspect]
     Active Substance: PEGINTERFERON ALFA-2A
     Indication: CHRONIC HEPATITIS C
     Route: 058
     Dates: start: 20111202, end: 20120210
  2. PEGASYS [Suspect]
     Active Substance: PEGINTERFERON ALFA-2A
     Route: 065
     Dates: start: 20120217
  3. RIBAVIRIN. [Suspect]
     Active Substance: RIBAVIRIN
     Indication: CHRONIC HEPATITIS C
     Route: 048
     Dates: start: 20111202, end: 20120210
  4. RIBAVIRIN. [Suspect]
     Active Substance: RIBAVIRIN
     Route: 065
     Dates: start: 20120217

REACTIONS (12)
  - White blood cell count decreased [Unknown]
  - Weight decreased [Unknown]
  - Dizziness [Unknown]
  - Vomiting [Unknown]
  - Hyperhidrosis [Unknown]
  - Musculoskeletal pain [Unknown]
  - Bronchitis [Unknown]
  - Anaemia [Unknown]
  - Fatigue [Unknown]
  - Nausea [Unknown]
  - Decreased appetite [Unknown]
  - Chills [Unknown]
